FAERS Safety Report 18818778 (Version 2)
Quarter: 2021Q1

REPORT INFORMATION
  Report Type: Spontaneous
  Country: ES (occurrence: ES)
  Receive Date: 20210201
  Receipt Date: 20210317
  Transmission Date: 20210419
  Serious: Yes (Other)
  Sender: FDA-Public Use
  Company Number: ES-GLAXOSMITHKLINE-ES2021EME013673

PATIENT
  Age: 42 Year
  Sex: Female

DRUGS (2)
  1. NUCALA [Suspect]
     Active Substance: MEPOLIZUMAB
     Indication: ASTHMA
     Dosage: 100 MG, Z (MONTHLY)
     Route: 058
     Dates: start: 20200909
  2. MONTELUKAST [Suspect]
     Active Substance: MONTELUKAST SODIUM
     Indication: ASTHMA
     Dosage: UNK

REACTIONS (7)
  - Nail psoriasis [Not Recovered/Not Resolved]
  - Nail pitting [Unknown]
  - Migraine [Recovering/Resolving]
  - Nail bed bleeding [Unknown]
  - Nail discolouration [Not Recovered/Not Resolved]
  - Onychalgia [Not Recovered/Not Resolved]
  - Onycholysis [Not Recovered/Not Resolved]

NARRATIVE: CASE EVENT DATE: 20200909
